FAERS Safety Report 9925165 (Version 1)
Quarter: 2014Q1

REPORT INFORMATION
  Report Type: Spontaneous
  Country: CL (occurrence: None)
  Receive Date: 20140220
  Receipt Date: 20140220
  Transmission Date: 20141002
  Serious: Yes (Other)
  Sender: FDA-Public Use
  Company Number: 2014CL00130

PATIENT
  Sex: 0

DRUGS (1)
  1. TOPIRAMATE [Suspect]
     Indication: SLEEP-RELATED EATING DISORDER
     Route: 048

REACTIONS (2)
  - Depressive symptom [None]
  - Condition aggravated [None]
